FAERS Safety Report 18637605 (Version 1)
Quarter: 2020Q4

REPORT INFORMATION
  Report Type: Spontaneous
  Country: PL (occurrence: PL)
  Receive Date: 20201218
  Receipt Date: 20201218
  Transmission Date: 20210114
  Serious: Yes (Other)
  Sender: FDA-Public Use
  Company Number: PL-MYLANLABS-2020M1102819

PATIENT
  Age: 72 Year
  Sex: Female

DRUGS (12)
  1. CALPEROS OSTEO [Concomitant]
     Dosage: UNK
  2. CO AMLESSA [Concomitant]
     Dosage: 8 MILLIGRAM
  3. NEUROVIT                           /00176001/ [Concomitant]
     Dosage: UNK
  4. PERJETA [Suspect]
     Active Substance: PERTUZUMAB
     Indication: HER2 POSITIVE BREAST CANCER
     Dosage: 840 MILLIGRAM LOADING DOSE
     Route: 065
     Dates: start: 201907, end: 20200623
  5. ZOLEDRONIC ACID [Suspect]
     Active Substance: ZOLEDRONIC ACID
     Indication: HER2 POSITIVE BREAST CANCER
     Dosage: UNK
     Route: 042
     Dates: start: 201907, end: 20200623
  6. PERJETA [Suspect]
     Active Substance: PERTUZUMAB
     Dosage: 420 MILLIGRAM, Q3W
     Route: 042
  7. KADCYLA [Suspect]
     Active Substance: ADO-TRASTUZUMAB EMTANSINE
     Indication: HER2 POSITIVE BREAST CANCER
     Dosage: 600 MILLIGRAM, Q3W
     Route: 058
     Dates: start: 201907, end: 20200623
  8. DOCETAXEL. [Suspect]
     Active Substance: DOCETAXEL
     Indication: HER2 POSITIVE BREAST CANCER
     Dosage: 75 MILLIGRAM/SQ. METER, Q3W
     Route: 065
     Dates: start: 201907, end: 20200623
  9. CO AMLESSA [Concomitant]
     Dosage: 10 MILLIGRAM
  10. CO AMLESSA [Concomitant]
     Dosage: 5 MILLIGRAM
  11. CO AMLESSA [Concomitant]
     Dosage: 2 MILLIGRAM
  12. EUTHYROX [Concomitant]
     Active Substance: LEVOTHYROXINE SODIUM
     Dosage: UNK

REACTIONS (2)
  - Anaemia [Unknown]
  - Hepatic lesion [Unknown]
